APPROVED DRUG PRODUCT: TEVETEN HCT
Active Ingredient: EPROSARTAN MESYLATE; HYDROCHLOROTHIAZIDE
Strength: 600MG;12.5MG
Dosage Form/Route: TABLET;ORAL
Application: N021268 | Product #001
Applicant: ABBVIE INC
Approved: Nov 1, 2001 | RLD: No | RS: No | Type: DISCN